FAERS Safety Report 5537684-0 (Version None)
Quarter: 2007Q4

REPORT INFORMATION
  Report Type: 
  Country: None (occurrence: None)
  Receive Date: 20071207
  Receipt Date: 20071115
  Transmission Date: 20080405
  Serious: No
  Sender: FDA-Public Use
  Company Number: US-JNJFOC-20071106846

PATIENT
  Sex: Female

DRUGS (1)
  1. INVEGA [Suspect]
     Indication: ANXIETY
     Route: 048

REACTIONS (4)
  - DIZZINESS [None]
  - HEADACHE [None]
  - OEDEMA PERIPHERAL [None]
  - VISION BLURRED [None]
